FAERS Safety Report 21412329 (Version 1)
Quarter: 2022Q4

REPORT INFORMATION
  Report Type: Spontaneous
  Country: US (occurrence: US)
  Receive Date: 20221005
  Receipt Date: 20221005
  Transmission Date: 20230113
  Serious: No
  Sender: FDA-Public Use
  Company Number: US-INTRA-CELLULAR THERAPIES, INC.-2022ICT01203

PATIENT
  Sex: Female

DRUGS (4)
  1. CAPLYTA [Suspect]
     Active Substance: LUMATEPERONE
     Dosage: UNK
     Dates: start: 202208
  2. LITHIUM [Suspect]
     Active Substance: LITHIUM
     Dosage: UNK
     Dates: end: 202208
  3. LITHIUM [Suspect]
     Active Substance: LITHIUM
     Dosage: DECREASED
     Dates: start: 202208, end: 202208
  4. LITHIUM [Suspect]
     Active Substance: LITHIUM
     Dosage: INCREASED
     Dates: start: 202208

REACTIONS (1)
  - Regressive behaviour [Unknown]

NARRATIVE: CASE EVENT DATE: 20220801
